FAERS Safety Report 11507591 (Version 1)
Quarter: 2015Q3

REPORT INFORMATION
  Report Type: Spontaneous
  Country: US (occurrence: None)
  Receive Date: 20150914
  Receipt Date: 20150914
  Transmission Date: 20151125
  Serious: No
  Sender: FDA-Public Use
  Company Number: None

PATIENT
  Age: 73 Year
  Sex: Male
  Weight: 72.58 kg

DRUGS (16)
  1. LIALDA [Concomitant]
     Active Substance: MESALAMINE
  2. TOPROL XL [Concomitant]
     Active Substance: METOPROLOL SUCCINATE
  3. TRAZODONE [Concomitant]
     Active Substance: TRAZODONE HYDROCHLORIDE
  4. MORPHINE SULFATE. [Concomitant]
     Active Substance: MORPHINE SULFATE
  5. ASPIRIN. [Concomitant]
     Active Substance: ASPIRIN
  6. AREDS 2 [Concomitant]
  7. MULTI VITAMIN [Concomitant]
     Active Substance: VITAMINS
  8. PROSCAR [Concomitant]
     Active Substance: FINASTERIDE
  9. LIPITOR [Concomitant]
     Active Substance: ATORVASTATIN CALCIUM
  10. NEXIUM [Concomitant]
     Active Substance: ESOMEPRAZOLE MAGNESIUM
  11. OXICODONEHCL [Concomitant]
  12. AMLODIPINE BESYLATE 10MG QUALITEST [Suspect]
     Active Substance: AMLODIPINE BESYLATE
     Indication: HYPERTENSION
     Route: 048
     Dates: start: 20150707, end: 20150911
  13. AMOXICILLIN. [Concomitant]
     Active Substance: AMOXICILLIN
  14. NORVASC [Concomitant]
     Active Substance: AMLODIPINE BESYLATE
  15. VALTREX [Concomitant]
     Active Substance: VALACYCLOVIR HYDROCHLORIDE
  16. OMEGA 3 [Concomitant]
     Active Substance: OMEGA-3 FATTY ACIDS

REACTIONS (5)
  - Product solubility abnormal [None]
  - Foreign body [None]
  - Dysphagia [None]
  - Product taste abnormal [None]
  - Product substitution issue [None]

NARRATIVE: CASE EVENT DATE: 20150901
